FAERS Safety Report 6209275-X (Version None)
Quarter: 2009Q2

REPORT INFORMATION
  Report Type: 
  Country: None (occurrence: None)
  Receive Date: 20090529
  Receipt Date: 20090522
  Transmission Date: 20091009
  Serious: Yes (Hospitalization)
  Sender: FDA-Public Use
  Company Number: FR-GILEAD-2009-0020870

PATIENT
  Sex: Male
  Weight: 74 kg

DRUGS (8)
  1. TRUVADA [Suspect]
     Indication: HIV INFECTION
     Route: 048
     Dates: start: 20081209
  2. TRUVADA [Suspect]
     Route: 048
     Dates: start: 20081125, end: 20081209
  3. KALETRA [Concomitant]
     Indication: HIV INFECTION
     Dates: start: 20081125
  4. BACTRIM [Concomitant]
     Indication: PNEUMOCYSTIS JIROVECI PNEUMONIA
     Dates: start: 20081126
  5. TAHOR [Concomitant]
  6. KARDEGIC [Concomitant]
  7. MEPOLIZUMAB [Concomitant]
     Indication: HYPEREOSINOPHILIC SYNDROME
     Dates: start: 20050101
  8. CORDARONE [Concomitant]
     Indication: PAROXYSMAL ARRHYTHMIA

REACTIONS (3)
  - OEDEMA [None]
  - RENAL FAILURE ACUTE [None]
  - WEIGHT INCREASED [None]
